FAERS Safety Report 7890471-0 (Version None)
Quarter: 2011Q4

REPORT INFORMATION
  Report Type: 
  Country: None (occurrence: None)
  Receive Date: 20111103
  Receipt Date: 20110722
  Transmission Date: 20120403
  Serious: No
  Sender: FDA-Public Use
  Company Number: US-AMGEN-USASP2011037486

PATIENT
  Sex: Female

DRUGS (1)
  1. ENBREL [Suspect]
     Indication: PSORIASIS
     Dosage: 50 MG, 2 TIMES/WK
     Dates: start: 20110701

REACTIONS (5)
  - INJECTION SITE PAIN [None]
  - INJECTION SITE HAEMATOMA [None]
  - PARAESTHESIA [None]
  - HYPOAESTHESIA [None]
  - DIARRHOEA [None]
